FAERS Safety Report 19762401 (Version 1)
Quarter: 2021Q3

REPORT INFORMATION
  Report Type: Spontaneous
  Country: FR (occurrence: FR)
  Receive Date: 20210830
  Receipt Date: 20210830
  Transmission Date: 20211014
  Serious: Yes (Death, Life-Threatening, Other)
  Sender: FDA-Public Use
  Company Number: FR-BAUSCH-BL-2021-028214

PATIENT
  Age: 58 Year
  Sex: Female

DRUGS (14)
  1. PAROXETINE HYDROCHLORIDE. [Suspect]
     Active Substance: PAROXETINE HYDROCHLORIDE
     Indication: DEPRESSION
     Route: 048
  2. EVICEL [Suspect]
     Active Substance: FIBRINOGEN HUMAN\THROMBIN HUMAN
     Indication: ANAESTHESIA
     Dosage: DOSE: 1
     Route: 065
     Dates: start: 20210412, end: 20210412
  3. DIPRIVAN [Suspect]
     Active Substance: PROPOFOL
     Indication: ANAESTHESIA
     Route: 042
     Dates: start: 20210412
  4. DEXAMETHASONE. [Suspect]
     Active Substance: DEXAMETHASONE
     Indication: ANAESTHESIA
     Route: 042
     Dates: start: 20210412, end: 20210412
  5. SUFENTANIL [Suspect]
     Active Substance: SUFENTANIL
     Indication: ANAESTHESIA
     Route: 042
     Dates: start: 20210412, end: 20210412
  6. BREXIN [PIROXICAM BETADEX] [Concomitant]
     Active Substance: PIROXICAM BETADEX
     Indication: PRODUCT USED FOR UNKNOWN INDICATION
     Route: 048
  7. HEPARIN CALCIUM [Suspect]
     Active Substance: HEPARIN CALCIUM
     Indication: PRODUCT USED FOR UNKNOWN INDICATION
     Route: 065
  8. MIDAZOLAM. [Suspect]
     Active Substance: MIDAZOLAM
     Indication: ANAESTHESIA
     Dosage: INJECTION, SOLUTION
     Route: 042
     Dates: start: 20210412
  9. PROTAMINE SULFATE. [Suspect]
     Active Substance: PROTAMINE SULFATE
     Indication: HAEMORRHAGE
     Route: 065
  10. NAROPEINE [Suspect]
     Active Substance: ROPIVACAINE HYDROCHLORIDE
     Indication: ANAESTHESIA
     Route: 039
     Dates: start: 20210412, end: 20210412
  11. HEPARIN SODIUM. [Suspect]
     Active Substance: HEPARIN SODIUM
     Indication: PRODUCT USED FOR UNKNOWN INDICATION
     Route: 065
  12. CEFAZOLIN [Suspect]
     Active Substance: CEFAZOLIN
     Indication: ANTIBIOTIC PROPHYLAXIS
     Route: 042
     Dates: start: 20210412, end: 20210412
  13. TRANEXAMIC ACID. [Suspect]
     Active Substance: TRANEXAMIC ACID
     Indication: HAEMORRHAGE
     Route: 065
     Dates: start: 20210412, end: 20210412
  14. INIPOMP [Concomitant]
     Active Substance: PANTOPRAZOLE SODIUM
     Indication: PRODUCT USED FOR UNKNOWN INDICATION
     Route: 048

REACTIONS (8)
  - Haemorrhage [Unknown]
  - Metabolic acidosis [Unknown]
  - Product use issue [Unknown]
  - Shock haemorrhagic [Unknown]
  - Pulmonary oedema [Unknown]
  - Hypertension [Unknown]
  - Back pain [Unknown]
  - Tonic clonic movements [Fatal]

NARRATIVE: CASE EVENT DATE: 20210412
